FAERS Safety Report 21383866 (Version 1)
Quarter: 2022Q3

REPORT INFORMATION
  Report Type: Spontaneous
  Country: CA (occurrence: CA)
  Receive Date: 20220928
  Receipt Date: 20220928
  Transmission Date: 20221027
  Serious: Yes (Hospitalization)
  Sender: FDA-Public Use
  Company Number: CA-002147023-NVSC2022CA214679

PATIENT
  Age: 39 Year
  Sex: Female

DRUGS (8)
  1. XOLAIR [Suspect]
     Active Substance: OMALIZUMAB
     Indication: Chronic spontaneous urticaria
     Route: 058
  2. CLONAZEPAM [Suspect]
     Active Substance: CLONAZEPAM
     Indication: Product used for unknown indication
     Route: 065
  3. HYDROMORPHONE [Suspect]
     Active Substance: HYDROMORPHONE
     Indication: Product used for unknown indication
     Dosage: 2 MG, 2 EVERY 1 DAYS
     Route: 065
  4. CYMBALTA [Suspect]
     Active Substance: DULOXETINE HYDROCHLORIDE
     Indication: Product used for unknown indication
     Route: 065
  5. HYDROXYZINE [Concomitant]
     Active Substance: HYDROXYZINE HYDROCHLORIDE
     Indication: Hypersensitivity
  6. CETIRIZINE HYDROCHLORIDE [Concomitant]
     Active Substance: CETIRIZINE HYDROCHLORIDE
     Indication: Product used for unknown indication
     Dosage: UNK
  7. TRINTELLIX [Concomitant]
     Active Substance: VORTIOXETINE HYDROBROMIDE
     Indication: Product used for unknown indication
     Dosage: UNK
  8. ZOPICLONE [Concomitant]
     Active Substance: ZOPICLONE
     Indication: Product used for unknown indication
     Dosage: UNK

REACTIONS (25)
  - Anxiety [Unknown]
  - Asthenia [Unknown]
  - Decompression sickness [Unknown]
  - Decreased appetite [Unknown]
  - Depression [Unknown]
  - Dyspnoea [Unknown]
  - Fatigue [Unknown]
  - Feeling abnormal [Unknown]
  - Cough [Unknown]
  - Influenza [Unknown]
  - Malaise [Unknown]
  - Mental disorder [Unknown]
  - Migraine [Unknown]
  - Mobility decreased [Unknown]
  - Nasal congestion [Unknown]
  - Pain [Unknown]
  - Postoperative wound infection [Unknown]
  - Weight decreased [Unknown]
  - Weight increased [Unknown]
  - Pyrexia [Unknown]
  - Urticaria [Unknown]
  - Nasopharyngitis [Unknown]
  - Headache [Unknown]
  - Arthralgia [Unknown]
  - Inappropriate schedule of product administration [Unknown]
